FAERS Safety Report 20617183 (Version 1)
Quarter: 2022Q1

REPORT INFORMATION
  Report Type: Spontaneous
  Country: US (occurrence: None)
  Receive Date: 20220318
  Receipt Date: 20220318
  Transmission Date: 20220423
  Serious: No
  Sender: FDA-Public Use
  Company Number: None

PATIENT
  Age: 81 Year
  Sex: Male
  Weight: 76.5 kg

DRUGS (15)
  1. CLONIDINE [Suspect]
     Active Substance: CLONIDINE
     Indication: Hypertension
     Dosage: QUANTITY: 270 TABLETS
     Route: 048
     Dates: start: 20220303, end: 20220318
  2. CRESTOR [Concomitant]
     Active Substance: ROSUVASTATIN CALCIUM
  3. LASIX [Concomitant]
     Active Substance: FUROSEMIDE
  4. METOPROLOL SUCCINATE [Concomitant]
     Active Substance: METOPROLOL SUCCINATE
  5. CLONIDINE [Concomitant]
     Active Substance: CLONIDINE
  6. aminodipine [Concomitant]
  7. GLIPIZIDE [Concomitant]
     Active Substance: GLIPIZIDE
  8. valtassa [Concomitant]
  9. SELENIUM [Concomitant]
     Active Substance: SELENIUM
  10. ZINC [Concomitant]
     Active Substance: ZINC
  11. HERBALS\TURMERIC [Concomitant]
     Active Substance: HERBALS\TURMERIC
  12. MAGNESIUM [Concomitant]
     Active Substance: MAGNESIUM
  13. ASPIRIN [Concomitant]
     Active Substance: ASPIRIN
  14. VITAMIN D3 [Suspect]
     Active Substance: CHOLECALCIFEROL
  15. COENZYME Q10 [Concomitant]
     Active Substance: DIETARY SUPPLEMENT\UBIDECARENONE

REACTIONS (1)
  - Hyperglycaemia [None]

NARRATIVE: CASE EVENT DATE: 20220305
